FAERS Safety Report 13790695 (Version 2)
Quarter: 2018Q2

REPORT INFORMATION
  Report Type: Spontaneous
  Country: US (occurrence: US)
  Receive Date: 20170725
  Receipt Date: 20180418
  Transmission Date: 20180711
  Serious: No
  Sender: FDA-Public Use
  Company Number: US-GALDERMA-US17001584

PATIENT
  Sex: Female
  Weight: 50.8 kg

DRUGS (6)
  1. MULTIVITAMIN [Concomitant]
     Active Substance: VITAMINS
     Indication: PRODUCT USED FOR UNKNOWN INDICATION
  2. SWEDISH ALOE MOISTURIZER [Concomitant]
     Indication: PRODUCT USED FOR UNKNOWN INDICATION
     Route: 061
  3. SOAP [Concomitant]
     Active Substance: SOAP
     Indication: PRODUCT USED FOR UNKNOWN INDICATION
  4. DIFFERIN GEL [Suspect]
     Active Substance: ADAPALENE
     Indication: ACNE
     Dosage: 0.1%
     Route: 061
     Dates: start: 2017
  5. EGG WHITE WASH [Concomitant]
     Indication: PRODUCT USED FOR UNKNOWN INDICATION
     Route: 061
  6. BARE MINERALS FOUNDATION [Concomitant]
     Indication: PRODUCT USED FOR UNKNOWN INDICATION

REACTIONS (3)
  - Acne [Recovered/Resolved]
  - Urticaria [Recovered/Resolved]
  - Dermatitis [Recovered/Resolved]
